FAERS Safety Report 7801411-4 (Version None)
Quarter: 2011Q4

REPORT INFORMATION
  Report Type: 
  Country: None (occurrence: None)
  Receive Date: 20111006
  Receipt Date: 20111006
  Transmission Date: 20120403
  Serious: Yes (Hospitalization)
  Sender: FDA-Public Use
  Company Number: None

PATIENT
  Age: 90 Year
  Sex: Female
  Weight: 52 kg

DRUGS (10)
  1. COUMADIN [Suspect]
     Indication: ATRIAL FIBRILLATION
     Dosage: 1.5MG QHS PO CHRONIC
     Route: 048
  2. SIMVASTATIN [Concomitant]
  3. CALCIUM CARBONATE [Concomitant]
  4. FERROUS SULFATE TAB [Concomitant]
  5. METOPROLOL SUCCINATE [Concomitant]
  6. OMEPRAZOLE [Concomitant]
  7. LASIX [Concomitant]
  8. POTASSIUM CHLORIDE [Concomitant]
  9. ASPIRIN [Suspect]
     Indication: TRANSIENT ISCHAEMIC ATTACK
     Dosage: 81MG DAILY PO CHRONIC
     Route: 048
  10. LISINOPRIL [Concomitant]

REACTIONS (5)
  - DIZZINESS [None]
  - ABDOMINAL PAIN [None]
  - MELAENA [None]
  - GASTRITIS [None]
  - INTERNATIONAL NORMALISED RATIO INCREASED [None]
